FAERS Safety Report 7207343-7 (Version None)
Quarter: 2010Q4

REPORT INFORMATION
  Report Type: 
  Country: None (occurrence: None)
  Receive Date: 20101221
  Receipt Date: 20101213
  Transmission Date: 20110411
  Serious: Yes (Hospitalization)
  Sender: FDA-Public Use
  Company Number: 2010SP003495

PATIENT
  Age: 69 Year
  Sex: Female
  Weight: 102.0593 kg

DRUGS (22)
  1. ARFORMOTEROL TARTRATE [Suspect]
     Indication: CHRONIC OBSTRUCTIVE PULMONARY DISEASE
     Dosage: 15 UG; INHALATION
     Route: 055
     Dates: start: 20091112, end: 20101108
  2. LEVOTHROID [Concomitant]
  3. MIRALAX [Concomitant]
  4. PULMICORT [Concomitant]
  5. SPIRIVA [Concomitant]
  6. LORAZEPAM [Concomitant]
  7. LOVASTATION [Concomitant]
  8. DILTIAZEM [Concomitant]
  9. ATENOLOL [Concomitant]
  10. PRILOSEC [Concomitant]
  11. VENTOLIN HFRA [Concomitant]
  12. ADVIL LIQUI-GELS [Concomitant]
  13. NABUMETONE [Concomitant]
  14. ALBUTEROL SULFATE [Concomitant]
  15. INFLUENZA [Concomitant]
  16. HYDRODOCONE [Concomitant]
  17. SEPTRA [Concomitant]
  18. PREDNISONE [Concomitant]
  19. ATROVENT [Concomitant]
  20. OMNIPAQUE 140 [Concomitant]
  21. PROVENTIL /00139501/ [Concomitant]
  22. HYDROCODONE [Concomitant]

REACTIONS (3)
  - CHEST PAIN [None]
  - CHOLECYSTITIS [None]
  - CHOLELITHIASIS [None]
